FAERS Safety Report 16854029 (Version 2)
Quarter: 2020Q1

REPORT INFORMATION
  Report Type: Spontaneous
  Country: GB (occurrence: GB)
  Receive Date: 20190926
  Receipt Date: 20200121
  Transmission Date: 20200409
  Serious: Yes (Other)
  Sender: FDA-Public Use
  Company Number: GB-DRREDDYS-GER/UKI/19/0114295

PATIENT
  Age: 85 Year
  Sex: Male

DRUGS (1)
  1. DONEPEZIL. [Suspect]
     Active Substance: DONEPEZIL
     Indication: DEMENTIA
     Dosage: 5MG NOCTE (AT NIGHT)
     Route: 065
     Dates: start: 201811

REACTIONS (5)
  - Agitation [Unknown]
  - Anxiety [Unknown]
  - Confusional state [Unknown]
  - Aggression [Unknown]
  - Delusion [Unknown]
